APPROVED DRUG PRODUCT: METFORMIN HYDROCHLORIDE
Active Ingredient: METFORMIN HYDROCHLORIDE
Strength: 500MG
Dosage Form/Route: TABLET;ORAL
Application: A208999 | Product #001
Applicant: SUNSHINE LAKE PHARMA CO LTD
Approved: Oct 12, 2018 | RLD: No | RS: No | Type: DISCN